FAERS Safety Report 21298732 (Version 1)
Quarter: 2022Q3

REPORT INFORMATION
  Report Type: Spontaneous
  Country: US (occurrence: None)
  Receive Date: 20220905
  Receipt Date: 20220905
  Transmission Date: 20221027
  Serious: Yes (Hospitalization)
  Sender: FDA-Public Use
  Company Number: None

PATIENT
  Age: 80 Year
  Sex: Male
  Weight: 39.92 kg

DRUGS (1)
  1. SEMAGLUTIDE [Suspect]
     Active Substance: SEMAGLUTIDE
     Indication: Pancreatitis acute
     Dosage: 0.5 MG QWEEK SQ
     Route: 058
     Dates: start: 20210621, end: 20220513

REACTIONS (3)
  - Fall [None]
  - Chest injury [None]
  - Pancreatitis acute [None]

NARRATIVE: CASE EVENT DATE: 20220513
